FAERS Safety Report 5260136-2 (Version None)
Quarter: 2007Q1

REPORT INFORMATION
  Report Type: 
  Country: None (occurrence: None)
  Receive Date: 20070309
  Receipt Date: 20060330
  Transmission Date: 20070707
  Serious: No
  Sender: FDA-Public Use
  Company Number: US-GLAXOSMITHKLINE-A0599462A

PATIENT
  Age: 63 Year
  Sex: Female

DRUGS (1)
  1. EQUATE NICOTINE GUM 2MG, MINT [Suspect]
     Dates: start: 20051103

REACTIONS (6)
  - BURNING SENSATION [None]
  - ERYTHEMA [None]
  - INTENTIONAL DRUG MISUSE [None]
  - ORAL DISCOMFORT [None]
  - PRURITUS [None]
  - RASH [None]
